FAERS Safety Report 9619253 (Version 1)
Quarter: 2013Q4

REPORT INFORMATION
  Report Type: Spontaneous
  Country: BR (occurrence: BR)
  Receive Date: 20131014
  Receipt Date: 20131014
  Transmission Date: 20140711
  Serious: Yes (Death, Other)
  Sender: FDA-Public Use
  Company Number: BR-PFIZER INC-2013292282

PATIENT
  Age: 53 Year
  Sex: Male

DRUGS (1)
  1. LYRICA [Suspect]
     Indication: STRESS
     Dosage: UNK
     Route: 048
     Dates: start: 201308

REACTIONS (2)
  - Off label use [Fatal]
  - Road traffic accident [Fatal]
